FAERS Safety Report 7733810-3 (Version None)
Quarter: 2011Q3

REPORT INFORMATION
  Report Type: 
  Country: None (occurrence: None)
  Receive Date: 20110907
  Receipt Date: 20110829
  Transmission Date: 20111222
  Serious: Yes (Hospitalization, Other)
  Sender: FDA-Public Use
  Company Number: NL-JNJFOC-20110101246

PATIENT
  Sex: Female

DRUGS (2)
  1. REMICADE [Suspect]
     Indication: CROHN'S DISEASE
     Route: 042
     Dates: start: 20100101, end: 20110201
  2. PURINETHOL [Concomitant]
     Dates: start: 20100701

REACTIONS (4)
  - INFUSION SITE DISCOLOURATION [None]
  - INFUSION SITE ERYTHEMA [None]
  - SYSTEMIC LUPUS ERYTHEMATOSUS [None]
  - INFUSION SITE INDURATION [None]
